FAERS Safety Report 4626032-6 (Version None)
Quarter: 2005Q1

REPORT INFORMATION
  Report Type: 
  Country: None (occurrence: None)
  Receive Date: 20050330
  Receipt Date: 20050317
  Transmission Date: 20050727
  Serious: Yes (Hospitalization, Other)
  Sender: FDA-Public Use
  Company Number: 2005046753

PATIENT
  Age: 79 Year
  Sex: Female

DRUGS (9)
  1. XANAX [Suspect]
     Indication: ILL-DEFINED DISORDER
     Dosage: 0.75 MG (0.5 MG, 1 IN 1 D), ORAL
     Route: 048
     Dates: end: 20040722
  2. MADOPAR (BENSERAZIDE HYDROCHLORIDE, LEVODOPA) [Concomitant]
  3. ZOLPIDEM TARTRATE [Concomitant]
  4. LEVOTHYROXINE SODIUM [Concomitant]
  5. OXYBUTYNIN CHLORIDE [Concomitant]
  6. SERTRALINE HCL [Concomitant]
  7. RIVASTIGMINE TARTRATE [Concomitant]
  8. CALCIUM PHOSPHATE (CALCIUM PHOSPHATE) [Concomitant]
  9. ALFACALCIDOL (ALFACALCIDOL) [Concomitant]

REACTIONS (8)
  - AMNESIA [None]
  - BALANCE DISORDER [None]
  - EXTRAPYRAMIDAL DISORDER [None]
  - FALL [None]
  - HAEMATOMA [None]
  - PYREXIA [None]
  - RHABDOMYOLYSIS [None]
  - SOMNOLENCE [None]
